FAERS Safety Report 24688928 (Version 1)
Quarter: 2024Q4

REPORT INFORMATION
  Report Type: Spontaneous
  Country: ES (occurrence: ES)
  Receive Date: 20241203
  Receipt Date: 20241203
  Transmission Date: 20250115
  Serious: Yes (Other)
  Sender: ALEXION PHARMACEUTICALS
  Company Number: None

PATIENT
  Age: 86 Year
  Weight: 81 kg

DRUGS (14)
  1. DAPAGLIFLOZIN [Suspect]
     Active Substance: DAPAGLIFLOZIN
     Indication: Type 2 diabetes mellitus
     Dosage: 10.0 MG C/24 H
  2. Agiolax [Concomitant]
     Indication: Constipation
     Dosage: 5.0 G DE
  3. MAGNESIA CINFA [Concomitant]
     Indication: Constipation
     Dosage: 200.0 MG CO
  4. LINAGLIPTIN [Concomitant]
     Active Substance: LINAGLIPTIN
     Indication: Type 2 diabetes mellitus
     Dosage: 5.0 MG C/24 H
  5. METFORMIN HYDROCHLORIDE [Concomitant]
     Active Substance: METFORMIN HYDROCHLORIDE
     Indication: Type 2 diabetes mellitus
     Dosage: 850.0 MG A-DECE
  6. HYDROCHLOROTHIAZIDE\LOSARTAN POTASSIUM [Concomitant]
     Active Substance: HYDROCHLOROTHIAZIDE\LOSARTAN POTASSIUM
     Indication: Essential hypertension
     Dosage: 1.0 COMP DE
  7. ATENOLOL [Concomitant]
     Active Substance: ATENOLOL
     Indication: Essential hypertension
     Dosage: 50.0 MG DECE
  8. ASPIRIN [Concomitant]
     Active Substance: ASPIRIN
     Indication: Cerebral artery occlusion
     Dosage: 100.0 MG DE
  9. TAMSULOSIN HYDROCHLORIDE [Concomitant]
     Active Substance: TAMSULOSIN HYDROCHLORIDE
     Indication: Benign prostatic hyperplasia
     Dosage: 0.4 MG D-DE
  10. ALLOPURINOL [Concomitant]
     Active Substance: ALLOPURINOL
     Indication: Gout
     Dosage: 300.0 MG DE
  11. Clovate [Concomitant]
     Indication: Neurodermatitis
     Dosage: 1.0 APLIC C/24 H
  12. ELTROMBOPAG OLAMINE [Concomitant]
     Active Substance: ELTROMBOPAG OLAMINE
     Indication: Thrombocytopenia
     Dosage: 25.0 MG C/48 HORAS
  13. OMEPRAZOLE [Concomitant]
     Active Substance: OMEPRAZOLE
     Dosage: 20.0 MG A-DE
  14. ACETAMINOPHEN [Concomitant]
     Active Substance: ACETAMINOPHEN
     Indication: Pain
     Dosage: 1.0 G DECOCE

REACTIONS (2)
  - Balanoposthitis [Recovering/Resolving]
  - Skin candida [Recovering/Resolving]
